FAERS Safety Report 26117160 (Version 3)
Quarter: 2025Q4

REPORT INFORMATION
  Report Type: Spontaneous
  Country: US (occurrence: US)
  Receive Date: 20251203
  Receipt Date: 20251215
  Transmission Date: 20260117
  Serious: Yes (Hospitalization)
  Sender: PFIZER
  Company Number: US-MLMSERVICE-20251117-PI715565-00306-1

PATIENT
  Age: 73 Year
  Sex: Female

DRUGS (2)
  1. NIRMATRELVIR\RITONAVIR [Interacting]
     Active Substance: NIRMATRELVIR\RITONAVIR
     Indication: COVID-19 treatment
     Dosage: UNK
  2. TACROLIMUS [Interacting]
     Active Substance: TACROLIMUS
     Indication: Prophylaxis against transplant rejection
     Dosage: UNK

REACTIONS (4)
  - Drug interaction [Recovering/Resolving]
  - Drug level above therapeutic [Recovered/Resolved]
  - Blood creatinine increased [Recovered/Resolved]
  - Hypomagnesaemia [Recovering/Resolving]
